FAERS Safety Report 10157087 (Version 1)
Quarter: 2014Q2

REPORT INFORMATION
  Report Type: Spontaneous
  Country: US (occurrence: None)
  Receive Date: 20140506
  Receipt Date: 20140506
  Transmission Date: 20141212
  Serious: Yes (Other)
  Sender: FDA-Public Use
  Company Number: None

PATIENT
  Sex: Female

DRUGS (2)
  1. ESCITALOPRAM 20MG [Suspect]
     Indication: ANXIETY
     Route: 048
     Dates: start: 201312, end: 201401
  2. ESCITALOPRAM 20MG [Suspect]
     Indication: DEPRESSION
     Route: 048
     Dates: start: 201312, end: 201401

REACTIONS (1)
  - Panic attack [None]
